FAERS Safety Report 6141486-4 (Version None)
Quarter: 2009Q1

REPORT INFORMATION
  Report Type: 
  Country: None (occurrence: None)
  Receive Date: 20090331
  Receipt Date: 20090317
  Transmission Date: 20090719
  Serious: Yes (Death)
  Sender: FDA-Public Use
  Company Number: 2009-00526

PATIENT
  Age: 65 Year
  Sex: Male

DRUGS (5)
  1. VELCADE [Suspect]
     Indication: MULTIPLE MYELOMA
     Dosage: 1.3 MG/M2;
     Dates: start: 20080909, end: 20081121
  2. ACYCLOVIR [Concomitant]
  3. DAPSONE [Concomitant]
  4. DEXAMETHASONE 4MG TAB [Concomitant]
  5. CLODRONATE DISODIUM (CLODRONATE DISODIUM) [Concomitant]

REACTIONS (4)
  - DISEASE PROGRESSION [None]
  - DRUG INEFFECTIVE [None]
  - PNEUMONIA [None]
  - RENAL FAILURE [None]
